FAERS Safety Report 16991229 (Version 1)
Quarter: 2019Q4

REPORT INFORMATION
  Report Type: Report from Study
  Country: PK (occurrence: PK)
  Receive Date: 20191104
  Receipt Date: 20191104
  Transmission Date: 20200122
  Serious: Yes (Death)
  Sender: FDA-Public Use
  Company Number: NVSC2019PK023226

PATIENT
  Age: 42 Year
  Sex: Female
  Weight: 74 kg

DRUGS (1)
  1. GLIVEC [Suspect]
     Active Substance: IMATINIB MESYLATE
     Indication: CHRONIC MYELOID LEUKAEMIA
     Dosage: 100 MG (4OD), QID
     Route: 048
     Dates: start: 20130716

REACTIONS (3)
  - Brain oedema [Fatal]
  - Subdural haematoma [Fatal]
  - Brain herniation [Fatal]

NARRATIVE: CASE EVENT DATE: 20191013
